FAERS Safety Report 18322283 (Version 1)
Quarter: 2020Q3

REPORT INFORMATION
  Report Type: Report from Study
  Country: US (occurrence: US)
  Receive Date: 20200928
  Receipt Date: 20200928
  Transmission Date: 20201103
  Serious: Yes (Hospitalization, Other)
  Sender: FDA-Public Use
  Company Number: US-JNJFOC-20200933496

PATIENT
  Sex: Male

DRUGS (2)
  1. ENZALUTAMIDE [Suspect]
     Active Substance: ENZALUTAMIDE
     Indication: HORMONE-REFRACTORY PROSTATE CANCER
     Route: 065
  2. ERLEADA [Suspect]
     Active Substance: APALUTAMIDE
     Indication: HORMONE-REFRACTORY PROSTATE CANCER
     Route: 048

REACTIONS (11)
  - Dizziness [Unknown]
  - Fall [Unknown]
  - Asthenia [Unknown]
  - Cognitive disorder [Unknown]
  - Arthralgia [Unknown]
  - Fracture [Unknown]
  - Fatigue [Unknown]
  - Hot flush [Unknown]
  - Adverse drug reaction [Unknown]
  - Seizure [Unknown]
  - Headache [Unknown]
